FAERS Safety Report 4905359-4 (Version None)
Quarter: 2006Q1

REPORT INFORMATION
  Report Type: 
  Country: None (occurrence: None)
  Receive Date: 20060207
  Receipt Date: 20060207
  Transmission Date: 20060701
  Serious: No
  Sender: FDA-Public Use
  Company Number: None

PATIENT
  Age: 57 Year
  Sex: Male
  Weight: 76.6579 kg

DRUGS (2)
  1. ERTAPENEM 1GM VIAL MERCK [Suspect]
     Indication: OSTEOMYELITIS
     Dosage: 1 GRAM DAILY IV DRIP
     Route: 041
     Dates: start: 20051231, end: 20060203
  2. VANCOMYCIN [Suspect]
     Indication: ABSCESS
     Dosage: 1.25 GRAMS DAILY IV DRIP
     Route: 041
     Dates: start: 20051231, end: 20060203

REACTIONS (2)
  - INFUSION RELATED REACTION [None]
  - PANCYTOPENIA [None]
